FAERS Safety Report 7210373-2 (Version None)
Quarter: 2011Q1

REPORT INFORMATION
  Report Type: 
  Country: None (occurrence: None)
  Receive Date: 20110105
  Receipt Date: 20101223
  Transmission Date: 20110831
  Serious: Yes (Other)
  Sender: FDA-Public Use
  Company Number: PHFR2010GB05559

PATIENT
  Sex: Male

DRUGS (6)
  1. CLOZARIL [Suspect]
     Dosage: 475MG/DAY
     Route: 048
     Dates: start: 20101203
  2. AMLODIPINE [Concomitant]
     Dosage: UNK
     Route: 065
  3. ANTIHYPERTENSIVES [Concomitant]
     Indication: HYPERTENSION
     Dosage: UNK
     Route: 065
  4. CLOZARIL [Suspect]
     Indication: SCHIZOPHRENIA
     Dosage: 500 MG, UNK
     Route: 048
     Dates: start: 20061201
  5. RAMIPRIL [Concomitant]
     Dosage: UNK
     Route: 065
  6. CITALOPRAM [Concomitant]
     Indication: ANXIETY
     Dosage: 20MG/DAY
     Route: 048
     Dates: start: 20101203

REACTIONS (2)
  - LEFT VENTRICULAR HYPERTROPHY [None]
  - HYPERTENSION [None]
